FAERS Safety Report 6270421-3 (Version None)
Quarter: 2009Q3

REPORT INFORMATION
  Report Type: 
  Country: None (occurrence: None)
  Receive Date: 20090716
  Receipt Date: 20090706
  Transmission Date: 20100115
  Serious: Yes (Other)
  Sender: FDA-Public Use
  Company Number: PHHY2009DE08086

PATIENT
  Sex: Female

DRUGS (3)
  1. ZOMETA [Suspect]
     Indication: METASTASES TO BONE
     Dosage: 4 MG, QMO
     Route: 042
     Dates: start: 20080701
  2. FASLODEX [Concomitant]
     Dosage: 250 MG, EVERY 28 DAYS
     Route: 030
  3. RADIOTHERAPY [Suspect]

REACTIONS (2)
  - CARCINOEMBRYONIC ANTIGEN INCREASED [None]
  - MALIGNANT NEOPLASM PROGRESSION [None]
